FAERS Safety Report 5246138-0 (Version None)
Quarter: 2007Q1

REPORT INFORMATION
  Report Type: 
  Country: None (occurrence: None)
  Receive Date: 20070220
  Receipt Date: 20070202
  Transmission Date: 20070707
  Serious: Yes (Hospitalization)
  Sender: FDA-Public Use
  Company Number: 8021885

PATIENT
  Age: 18 Year
  Sex: Male
  Weight: 95 kg

DRUGS (2)
  1. KEPPRA [Suspect]
     Dosage: 500 MG 2/D PO
     Route: 048
     Dates: start: 20061109
  2. TOPIRAMATE [Concomitant]

REACTIONS (1)
  - STATUS EPILEPTICUS [None]
